FAERS Safety Report 9170515 (Version 1)
Quarter: 2013Q1

REPORT INFORMATION
  Report Type: Report from Study
  Country: UA (occurrence: UA)
  Receive Date: 20130319
  Receipt Date: 20130319
  Transmission Date: 20140127
  Serious: Yes (Disabling)
  Sender: FDA-Public Use
  Company Number: UA-JNJFOC-20111102832

PATIENT
  Age: 27 Year
  Sex: Female
  Weight: 70.1 kg

DRUGS (6)
  1. GOLIMUMAB [Suspect]
     Indication: RHEUMATOID ARTHRITIS
     Route: 042
     Dates: start: 20111205
  2. GOLIMUMAB [Suspect]
     Indication: RHEUMATOID ARTHRITIS
     Route: 042
     Dates: start: 20111013
  3. GOLIMUMAB [Suspect]
     Indication: RHEUMATOID ARTHRITIS
     Route: 042
     Dates: start: 20101011
  4. SORBIFER [Concomitant]
     Indication: ANAEMIA PROPHYLAXIS
     Route: 048
     Dates: start: 20101116
  5. FOLACIN [Concomitant]
     Indication: PROPHYLAXIS
     Route: 048
     Dates: start: 20090209
  6. NIMESIL [Concomitant]
     Indication: ARTHRALGIA
     Dates: start: 20090227

REACTIONS (1)
  - Lobar pneumonia [Recovered/Resolved]
